FAERS Safety Report 22617611 (Version 3)
Quarter: 2023Q4

REPORT INFORMATION
  Report Type: Spontaneous
  Country: US (occurrence: US)
  Receive Date: 20230620
  Receipt Date: 20231110
  Transmission Date: 20240109
  Serious: Yes (Other)
  Sender: FDA-Public Use
  Company Number: US-GLAXOSMITHKLINE-US2023AMR082663

PATIENT
  Sex: Female

DRUGS (2)
  1. ZEJULA [Suspect]
     Active Substance: NIRAPARIB
     Indication: Ovarian cancer
     Dosage: 200 MG, QD
     Dates: start: 20230530
  2. ZEJULA [Suspect]
     Active Substance: NIRAPARIB
     Dosage: 100 MG, QD

REACTIONS (17)
  - Mental impairment [Unknown]
  - Eructation [Unknown]
  - Mouth ulceration [Unknown]
  - Dizziness [Unknown]
  - Initial insomnia [Unknown]
  - Nausea [Unknown]
  - Balance disorder [Unknown]
  - Asthenia [Recovering/Resolving]
  - Tremor [Unknown]
  - Headache [Unknown]
  - Palpitations [Unknown]
  - Abnormal dreams [Unknown]
  - Exercise tolerance decreased [Unknown]
  - Laboratory test abnormal [Unknown]
  - Bradyphrenia [Unknown]
  - Blood pressure diastolic increased [Unknown]
  - Blood pressure increased [Unknown]
